FAERS Safety Report 5223828-7 (Version None)
Quarter: 2007Q1

REPORT INFORMATION
  Report Type: 
  Country: None (occurrence: None)
  Receive Date: 20070130
  Receipt Date: 20050915
  Transmission Date: 20070707
  Serious: No
  Sender: FDA-Public Use
  Company Number: US-BRISTOL-MYERS SQUIBB COMPANY-13112289

PATIENT
  Age: 4 Year
  Sex: Female

DRUGS (1)
  1. CEFZIL [Suspect]
     Indication: KIDNEY INFECTION

REACTIONS (1)
  - RASH GENERALISED [None]
